FAERS Safety Report 23069879 (Version 3)
Quarter: 2024Q1

REPORT INFORMATION
  Report Type: Report from Study
  Country: IT (occurrence: IT)
  Receive Date: 20231016
  Receipt Date: 20240119
  Transmission Date: 20240410
  Serious: Yes (Death)
  Sender: FDA-Public Use
  Company Number: IT-AMGEN-ITANI2023183145

PATIENT

DRUGS (6)
  1. SOTORASIB [Suspect]
     Active Substance: SOTORASIB
     Indication: Non-small cell lung cancer
     Dosage: UNK
     Route: 065
     Dates: start: 20210616
  2. SOTORASIB [Suspect]
     Active Substance: SOTORASIB
     Dosage: UNK
     Route: 065
     Dates: start: 20210716
  3. SOTORASIB [Suspect]
     Active Substance: SOTORASIB
     Dosage: UNK
     Route: 065
     Dates: start: 20210803
  4. SOTORASIB [Suspect]
     Active Substance: SOTORASIB
     Dosage: UNK
     Route: 065
     Dates: start: 20210907
  5. SOTORASIB [Suspect]
     Active Substance: SOTORASIB
     Dosage: UNK
     Route: 065
     Dates: start: 20211008
  6. SOTORASIB [Suspect]
     Active Substance: SOTORASIB
     Dosage: UNK
     Route: 065
     Dates: start: 20211119, end: 20211219

REACTIONS (1)
  - Cardiac arrest [Fatal]
